FAERS Safety Report 5947713-8 (Version None)
Quarter: 2008Q4

REPORT INFORMATION
  Report Type: 
  Country: None (occurrence: None)
  Receive Date: 20081110
  Receipt Date: 20081110
  Transmission Date: 20090506
  Serious: Yes (Hospitalization)
  Sender: FDA-Public Use
  Company Number: None

PATIENT
  Sex: Female
  Weight: 71 kg

DRUGS (2)
  1. CISPLATIN [Suspect]
     Indication: EPIGLOTTIC CARCINOMA
     Dosage: 100MG/M2 IV Q21DAYS
     Route: 042
     Dates: start: 20081027
  2. CETUXIMAB [Suspect]
     Indication: EPIGLOTTIC CARCINOMA
     Dosage: 250MG/M2 WEEKLY
     Dates: start: 20080826

REACTIONS (2)
  - ANAEMIA [None]
  - PNEUMONIA [None]
